FAERS Safety Report 6481549-7 (Version None)
Quarter: 2009Q4

REPORT INFORMATION
  Report Type: 
  Country: None (occurrence: None)
  Receive Date: 20091208
  Receipt Date: 20091201
  Transmission Date: 20100525
  Serious: Yes (Other)
  Sender: FDA-Public Use
  Company Number: US-SANOFI-AVENTIS-2009SA000282

PATIENT
  Sex: Male

DRUGS (3)
  1. MULTAQ [Suspect]
     Route: 048
     Dates: start: 20090902, end: 20090924
  2. PROTONIX [Concomitant]
  3. FLOMAX [Concomitant]

REACTIONS (2)
  - MUSCLE SPASMS [None]
  - OPTIC NEURITIS [None]
